FAERS Safety Report 16343547 (Version 1)
Quarter: 2019Q2

REPORT INFORMATION
  Report Type: Spontaneous
  Country: US (occurrence: US)
  Receive Date: 20190522
  Receipt Date: 20190522
  Transmission Date: 20190711
  Serious: Yes (Other)
  Sender: FDA-Public Use
  Company Number: US-AMGEN-USASP2019079031

PATIENT
  Age: 25 Year
  Sex: Female

DRUGS (7)
  1. ETANERCEPT [Suspect]
     Active Substance: ETANERCEPT
     Indication: TAKAYASU^S ARTERITIS
     Dosage: 50 MILLIGRAM, QWK
     Route: 058
  2. PREDNISONE. [Concomitant]
     Active Substance: PREDNISONE
     Dosage: 10-25 MILLIGRAM, QD
  3. ETANERCEPT [Suspect]
     Active Substance: ETANERCEPT
     Dosage: 50 MILLIGRAM, Q2WK
     Route: 058
  4. ASPIRIN [ACETYLSALICYLIC ACID] [Concomitant]
     Active Substance: ASPIRIN
     Dosage: 81 MILLIGRAM
  5. AZATHIOPRINE. [Concomitant]
     Active Substance: AZATHIOPRINE
     Dosage: 50 MILLIGRAM, 2 TIMES/WK, THEN 15 MILLIGRAM, QD
  6. ETANERCEPT [Suspect]
     Active Substance: ETANERCEPT
     Dosage: 50 MILLIGRAM, 2 TIMES/WK
     Route: 058
  7. ETANERCEPT [Suspect]
     Active Substance: ETANERCEPT
     Dosage: 50 MILLIGRAM, 2 TIMES/WK
     Route: 058

REACTIONS (7)
  - Gestational diabetes [Unknown]
  - Takayasu^s arteritis [Unknown]
  - Pre-eclampsia [Unknown]
  - Premature labour [Recovered/Resolved]
  - Off label use [Unknown]
  - Maternal exposure during pregnancy [Recovered/Resolved]
  - Premature rupture of membranes [Unknown]
